FAERS Safety Report 8036719-3 (Version None)
Quarter: 2012Q1

REPORT INFORMATION
  Report Type: 
  Country: None (occurrence: None)
  Receive Date: 20120106
  Receipt Date: 20111221
  Transmission Date: 20120608
  Serious: Yes (Death, Life-Threatening, Hospitalization)
  Sender: FDA-Public Use
  Company Number: GER/GER/12/0022510

PATIENT
  Age: 66 Year
  Sex: Male

DRUGS (3)
  1. METFORMIN HYDROCHLORIDE [Suspect]
     Indication: DIABETES MELLITUS
     Dosage: 2000 MG, ORAL
     Route: 048
  2. TORSEMIDE [Concomitant]
  3. CO-TRIMOXAZOL (BACTRIM) [Concomitant]

REACTIONS (7)
  - DYSPNOEA [None]
  - NAUSEA [None]
  - RENAL FAILURE ACUTE [None]
  - LACTIC ACIDOSIS [None]
  - HYPERKALAEMIA [None]
  - LABORATORY TEST ABNORMAL [None]
  - VOMITING [None]
